FAERS Safety Report 8328882-1 (Version None)
Quarter: 2012Q2

REPORT INFORMATION
  Report Type: 
  Country: None (occurrence: None)
  Receive Date: 20120502
  Receipt Date: 20120426
  Transmission Date: 20120825
  Serious: Yes (Hospitalization)
  Sender: FDA-Public Use
  Company Number: PHHY2012CL036666

PATIENT
  Age: 55 Year
  Sex: Male

DRUGS (11)
  1. TOL-12 [Concomitant]
  2. TRAMADOL HCL [Concomitant]
  3. ACTAN [Concomitant]
  4. SANDOSTATIN LAR [Suspect]
     Indication: NEOPLASM MALIGNANT
     Dosage: ONE INJECTION PER MONTH
     Route: 030
  5. ATENOLOL [Concomitant]
  6. LOSARTAN POTASSIUM [Concomitant]
  7. ATORVASTATIN CALCIUM [Concomitant]
  8. CONFER [Concomitant]
  9. ONDANSETRON [Concomitant]
  10. OMEPRAZOLE [Concomitant]
  11. RAVOTRIL [Concomitant]

REACTIONS (1)
  - CARDIAC FAILURE [None]
